FAERS Safety Report 14394099 (Version 1)
Quarter: 2018Q1

REPORT INFORMATION
  Report Type: Spontaneous
  Country: US (occurrence: US)
  Receive Date: 20180116
  Receipt Date: 20180116
  Transmission Date: 20180509
  Serious: No
  Sender: FDA-Public Use
  Company Number: US-REGENERON PHARMACEUTICALS, INC.-2017-15573

PATIENT

DRUGS (2)
  1. EYLEA [Suspect]
     Active Substance: AFLIBERCEPT
     Indication: DIABETIC RETINOPATHY
     Dosage: UNK, LEFT EYE, EVERY 2 MONTHS
     Dates: start: 20151124
  2. EYLEA [Suspect]
     Active Substance: AFLIBERCEPT
     Indication: MACULAR OEDEMA
     Dosage: EVERY TWO MONTHS
     Dates: start: 20170308, end: 20170308

REACTIONS (2)
  - Mental disorder [Unknown]
  - Drug ineffective [Unknown]
